FAERS Safety Report 25324936 (Version 1)
Quarter: 2025Q2

REPORT INFORMATION
  Report Type: Spontaneous
  Country: US (occurrence: None)
  Receive Date: 20250516
  Receipt Date: 20250516
  Transmission Date: 20250717
  Serious: Yes (Death)
  Sender: FDA-CTU
  Company Number: None

PATIENT
  Age: 72 Year
  Sex: Male
  Weight: 85.5 kg

DRUGS (1)
  1. REMERON [Suspect]
     Active Substance: MIRTAZAPINE
     Indication: Major depression
     Dates: start: 20230530, end: 20230628

REACTIONS (6)
  - Mental disorder [None]
  - Emotional disorder [None]
  - Sleep disorder [None]
  - Suicidal ideation [None]
  - Dissociative disorder [None]
  - Aggression [None]

NARRATIVE: CASE EVENT DATE: 20230628
